FAERS Safety Report 4707594-7 (Version None)
Quarter: 2005Q3

REPORT INFORMATION
  Report Type: 
  Country: None (occurrence: None)
  Receive Date: 20050705
  Receipt Date: 20050617
  Transmission Date: 20060218
  Serious: Yes (Hospitalization)
  Sender: FDA-Public Use
  Company Number: FR-2005-011773

PATIENT
  Age: 66 Year
  Sex: Female

DRUGS (5)
  1. SOTALOL(SOTALOL HYDROCHLRIDE)  TABLET [Suspect]
     Indication: HYPERTENSION
     Dosage: 240 MG 1XDAY ORAL
     Route: 048
  2. CORDARONE [Concomitant]
  3. ALDACTINE (ALTIZIDE) [Concomitant]
  4. DIAMICRON (GLICLAZIDE) [Concomitant]
  5. GLUCOR (ACARBOSE) [Concomitant]

REACTIONS (4)
  - ANAEMIA [None]
  - GASTRIC HAEMORRHAGE [None]
  - GASTRIC ULCER [None]
  - MELAENA [None]
